FAERS Safety Report 8061933-0 (Version None)
Quarter: 2012Q1

REPORT INFORMATION
  Report Type: 
  Country: None (occurrence: None)
  Receive Date: 20120123
  Receipt Date: 20120110
  Transmission Date: 20120608
  Serious: Yes (Hospitalization, Other)
  Sender: FDA-Public Use
  Company Number: CA-JNJFOC-20120107919

PATIENT
  Sex: Male
  Weight: 64.8 kg

DRUGS (6)
  1. HYDROCORTISONE [Concomitant]
     Indication: PREMEDICATION
     Route: 042
  2. REMICADE [Suspect]
     Indication: COLITIS ULCERATIVE
     Dosage: 2ND DOSE
     Route: 042
     Dates: start: 20120110
  3. REMICADE [Suspect]
     Route: 042
     Dates: start: 20060101, end: 20080101
  4. MESALAMINE [Concomitant]
     Route: 065
  5. BENADRYL [Concomitant]
     Indication: PREMEDICATION
     Route: 042
  6. REMICADE [Suspect]
     Dosage: 0-2-6 WEEKS
     Route: 042
     Dates: start: 20120101

REACTIONS (8)
  - SKIN REACTION [None]
  - EYELID OEDEMA [None]
  - DYSPHONIA [None]
  - PRODUCTIVE COUGH [None]
  - RASH PUSTULAR [None]
  - INFUSION RELATED REACTION [None]
  - RASH [None]
  - ERYTHEMA OF EYELID [None]
